FAERS Safety Report 4554985-3 (Version None)
Quarter: 2004Q4

REPORT INFORMATION
  Report Type: 
  Country: None (occurrence: None)
  Receive Date: 20041222
  Receipt Date: 20041123
  Transmission Date: 20050328
  Serious: Yes (Life-Threatening, Hospitalization)
  Sender: FDA-Public Use
  Company Number: 210470

PATIENT
  Age: 64 Year
  Sex: Male
  Weight: 75.7 kg

DRUGS (17)
  1. AVASTIN [Suspect]
     Indication: COLON CANCER METASTATIC
     Dosage: 370 MG, Q2W, INTRAVENOUS
     Route: 042
     Dates: start: 20040629, end: 20041026
  2. CAMPTOSAR [Concomitant]
  3. LEUCOVORIN CALCIUM [Concomitant]
  4. FLUOROURACIL [Concomitant]
  5. ALLOPURINOL [Concomitant]
  6. XANAX [Concomitant]
  7. LASIX [Concomitant]
  8. COMBIVENT (IPRATROPIUM BROMIDE, ALBUTEROL SULFATE, ALBUTEROL) [Concomitant]
  9. VITAMIN C (ASCORBIC ACID) [Concomitant]
  10. MULTIVITAMIN (MULTIVITAMINS NOS) [Concomitant]
  11. SAW PALMETTO (SAW PALMETTO) [Concomitant]
  12. POTASSIUM GLUCONATE (POTASSIUM GLUCONATE) [Concomitant]
  13. FLAXSEED OIL (LINSEED) [Concomitant]
  14. CHLORPHENIRAMINE MALEATE, HYDROCODONE BITARTRATE, PHENYLEPHRINE HYDROC [Concomitant]
  15. QUININE (QUININE) [Concomitant]
  16. FLONASE [Concomitant]
  17. SEREVENT [Concomitant]

REACTIONS (1)
  - CEREBROVASCULAR ACCIDENT [None]
